FAERS Safety Report 5744122-1 (Version None)
Quarter: 2008Q2

REPORT INFORMATION
  Report Type: 
  Country: None (occurrence: None)
  Receive Date: 20080520
  Receipt Date: 20080519
  Transmission Date: 20081010
  Serious: Yes (Hospitalization, Disabling)
  Sender: FDA-Public Use
  Company Number: B0516384A

PATIENT
  Age: 74 Year
  Sex: Male
  Weight: 51 kg

DRUGS (1)
  1. VALTREX [Suspect]
     Indication: HERPES VIRUS INFECTION
     Dosage: 1000MG THREE TIMES PER DAY
     Route: 048
     Dates: start: 20080326, end: 20080330

REACTIONS (5)
  - ANOREXIA [None]
  - FEELING ABNORMAL [None]
  - FLAT AFFECT [None]
  - MUSCULAR WEAKNESS [None]
  - SOMNOLENCE [None]
